FAERS Safety Report 8986813 (Version 1)
Quarter: 2012Q4

REPORT INFORMATION
  Report Type: Report from Study
  Country: CA (occurrence: CA)
  Receive Date: 20121226
  Receipt Date: 20121226
  Transmission Date: 20130627
  Serious: Yes (Other)
  Sender: FDA-Public Use
  Company Number: CA-ROCHE-1172695

PATIENT
  Sex: Male

DRUGS (3)
  1. TRASTUZUMAB [Suspect]
     Indication: GASTRIC CANCER
     Route: 065
     Dates: start: 201209, end: 201211
  2. CISPLATIN [Suspect]
     Indication: GASTRIC CANCER
     Route: 065
     Dates: start: 201209, end: 201211
  3. FLUOROURACIL [Suspect]
     Indication: GASTRIC CANCER
     Route: 065
     Dates: start: 201209, end: 201211

REACTIONS (4)
  - Disease progression [Unknown]
  - Febrile neutropenia [Unknown]
  - Mucosal inflammation [Unknown]
  - Diarrhoea [Unknown]
